FAERS Safety Report 21604662 (Version 2)
Quarter: 2022Q4

REPORT INFORMATION
  Report Type: Spontaneous
  Country: JP (occurrence: JP)
  Receive Date: 20221116
  Receipt Date: 20221129
  Transmission Date: 20230113
  Serious: Yes (Other)
  Sender: FDA-Public Use
  Company Number: JP-TEVA-2022-JP-2826196

PATIENT
  Age: 69 Year
  Sex: Female

DRUGS (6)
  1. PREDNISOLONE [Suspect]
     Active Substance: PREDNISOLONE
     Indication: Anti-neutrophil cytoplasmic antibody positive vasculitis
     Dosage: INITIAL PULSE THERAPY
     Route: 065
  2. PREDNISOLONE [Suspect]
     Active Substance: PREDNISOLONE
     Indication: Scleritis
     Dosage: 12.5 MILLIGRAM DAILY; TAPERED DOSE , ADDITIONAL INFO: ACTION TAKEN: THE THERAPY WAS INCREASED TO 30M
     Route: 065
  3. BETAMETHASONE [Suspect]
     Active Substance: BETAMETHASONE
     Indication: Anti-neutrophil cytoplasmic antibody positive vasculitis
     Route: 061
  4. BETAMETHASONE [Suspect]
     Active Substance: BETAMETHASONE
     Indication: Scleritis
  5. RITUXIMAB [Concomitant]
     Active Substance: RITUXIMAB
     Indication: Anti-neutrophil cytoplasmic antibody positive vasculitis
     Dosage: 500 MG/WEEK FOR 4 WEEKS
     Route: 065
  6. RITUXIMAB [Concomitant]
     Active Substance: RITUXIMAB
     Indication: Scleritis

REACTIONS (2)
  - Therapy non-responder [Unknown]
  - Rebound effect [Unknown]
